FAERS Safety Report 4323961-8 (Version None)
Quarter: 2004Q1

REPORT INFORMATION
  Report Type: 
  Country: None (occurrence: None)
  Receive Date: 20040326
  Receipt Date: 20031201
  Transmission Date: 20041129
  Serious: No
  Sender: FDA-Public Use
  Company Number: US-GLAXOSMITHKLINE-A0441488A

PATIENT
  Age: 57 Year
  Sex: Male
  Weight: 85.5 kg

DRUGS (6)
  1. ADVAIR DISKUS 100/50 [Suspect]
     Route: 055
  2. MECLIZINE [Concomitant]
     Dosage: 12.5U FOUR TIMES PER DAY
     Route: 048
  3. ZANTAC [Concomitant]
     Dosage: 150MG TWICE PER DAY
     Route: 048
  4. THEOPHYLLINE [Concomitant]
     Dosage: 300MG TWICE PER DAY
     Route: 048
  5. O2 [Concomitant]
     Route: 055
  6. DARVOCET-N 100 [Concomitant]
     Dosage: 100MG AS REQUIRED
     Route: 048

REACTIONS (2)
  - ORAL CANDIDIASIS [None]
  - PHARYNGITIS [None]
